FAERS Safety Report 26104312 (Version 1)
Quarter: 2025Q4

REPORT INFORMATION
  Report Type: Spontaneous
  Country: US (occurrence: US)
  Receive Date: 20251130
  Receipt Date: 20251130
  Transmission Date: 20260117
  Serious: Yes (Hospitalization, Other)
  Sender: MERCK SHARP & DOHME LLC
  Company Number: US-009507513-2352868

PATIENT
  Age: 71 Year
  Sex: Female

DRUGS (2)
  1. PEMBROLIZUMAB [Suspect]
     Active Substance: PEMBROLIZUMAB
     Indication: Renal cancer
  2. CABOMETYX [Suspect]
     Active Substance: CABOZANTINIB S-MALATE
     Indication: Renal cancer
     Route: 048
     Dates: start: 20251003

REACTIONS (6)
  - Hospitalisation [Unknown]
  - Radiotherapy [Unknown]
  - Diarrhoea [Unknown]
  - Visual field defect [Unknown]
  - Thinking abnormal [Unknown]
  - Rash [Unknown]

NARRATIVE: CASE EVENT DATE: 20250101
